FAERS Safety Report 20654032 (Version 1)
Quarter: 2022Q1

REPORT INFORMATION
  Report Type: Spontaneous
  Country: MX (occurrence: MX)
  Receive Date: 20220330
  Receipt Date: 20220330
  Transmission Date: 20220423
  Serious: Yes (Hospitalization)
  Sender: FDA-Public Use
  Company Number: MX-ABBVIE-22K-107-4336169-00

PATIENT
  Sex: Male

DRUGS (2)
  1. VENETOCLAX [Suspect]
     Active Substance: VENETOCLAX
     Indication: Chronic lymphocytic leukaemia
     Route: 048
     Dates: end: 202202
  2. COVID-19 VACCINE [Concomitant]
     Indication: COVID-19 immunisation
     Route: 065

REACTIONS (5)
  - COVID-19 [Recovered/Resolved with Sequelae]
  - Malaise [Unknown]
  - Oxygen saturation decreased [Recovering/Resolving]
  - Bacterial infection [Recovering/Resolving]
  - Disorientation [Unknown]

NARRATIVE: CASE EVENT DATE: 20220101
